FAERS Safety Report 25646093 (Version 1)
Quarter: 2025Q3

REPORT INFORMATION
  Report Type: Spontaneous
  Country: US (occurrence: None)
  Receive Date: 20250805
  Receipt Date: 20250805
  Transmission Date: 20251021
  Serious: Yes (Other)
  Sender: FDA-CTU
  Company Number: None

PATIENT
  Age: 32 Year
  Sex: Female
  Weight: 61.69 kg

DRUGS (5)
  1. CORTROPHIN-ZINC [Suspect]
     Active Substance: CORTICOTROPIN-ZINC HYDROXIDE
     Indication: Multiple sclerosis
     Dosage: FREQUENCY : DAILY;?
     Route: 058
  2. GABAPENTIN [Concomitant]
     Active Substance: GABAPENTIN
  3. TRAZODONE [Concomitant]
     Active Substance: TRAZODONE HYDROCHLORIDE
  4. SERTRALINE [Concomitant]
     Active Substance: SERTRALINE HYDROCHLORIDE
  5. CLONAZEPAM [Concomitant]
     Active Substance: CLONAZEPAM

REACTIONS (5)
  - Pain in extremity [None]
  - Hypoaesthesia [None]
  - Temperature intolerance [None]
  - Fatigue [None]
  - Disease recurrence [None]

NARRATIVE: CASE EVENT DATE: 20250805
